FAERS Safety Report 9074994 (Version 3)
Quarter: 2013Q4

REPORT INFORMATION
  Report Type: Report from Study
  Country: PL (occurrence: PL)
  Receive Date: 20130129
  Receipt Date: 20131008
  Transmission Date: 20140711
  Serious: Yes (Hospitalization, Other)
  Sender: FDA-Public Use
  Company Number: PL-PFIZER INC-2013012870

PATIENT
  Age: 63 Year
  Sex: Female

DRUGS (13)
  1. SUNITINIB MALATE [Suspect]
     Indication: RENAL CELL CARCINOMA
     Dosage: UNK
     Dates: start: 20120913
  2. SUNITINIB MALATE [Suspect]
     Dosage: 50 MG, DAILY, CYCLIC
     Dates: end: 20121224
  3. CYCLOPHOSPHAMIDE [Suspect]
     Indication: RENAL CELL CARCINOMA
     Dosage: UNK
     Dates: start: 20121016
  4. GRANULOCYTE MACROPHAGE COLONY STIM FACTOR [Suspect]
     Indication: RENAL CELL CARCINOMA
     Dosage: UNK
     Dates: start: 20121018, end: 20121220
  5. IMA901 [Suspect]
     Indication: RENAL CELL CARCINOMA
     Dosage: UNK
     Dates: start: 20121018, end: 20121220
  6. ENARENAL [Concomitant]
     Indication: HYPERTENSION
     Dosage: UNK
     Dates: start: 2002
  7. ATENOLOL [Concomitant]
     Indication: HYPERTENSION
     Dosage: UNK
     Dates: start: 2002
  8. THYROZOL [Concomitant]
     Indication: HYPERTHYROIDISM
     Dosage: UNK
     Dates: start: 201205
  9. GLUCOPHAGE [Concomitant]
     Indication: HYPERGLYCAEMIA
     Dosage: UNK
     Dates: start: 201111
  10. RANIGAST [Concomitant]
     Indication: PEPTIC ULCER
     Dosage: UNK
     Dates: start: 20121225, end: 20130102
  11. ALDAN [Concomitant]
     Indication: HYPERTENSION
     Dosage: UNK
     Dates: start: 20121225, end: 20130102
  12. FUROSEMIDE [Concomitant]
     Indication: HYPERTENSION
     Dosage: UNK
     Dates: start: 20121225, end: 20130102
  13. POLOPYRINA [Concomitant]
     Indication: PAIN
     Dosage: UNK
     Dates: start: 20121225, end: 20130102

REACTIONS (1)
  - Disseminated intravascular coagulation [Recovered/Resolved]
